FAERS Safety Report 8811172 (Version 2)
Quarter: 2012Q4

REPORT INFORMATION
  Report Type: 
  Country: US (occurrence: US)
  Receive Date: 20120924
  Receipt Date: 20121031
  Transmission Date: 20130627
  Serious: Yes (Hospitalization)
  Sender: FDA-Public Use
  Company Number: 2012P1053665

PATIENT
  Age: 40 Year
  Sex: Female
  Weight: 69.85 kg

DRUGS (5)
  1. SOLODYN [Suspect]
     Indication: ACNE CYSTIC
     Route: 048
     Dates: end: 20120805
  2. SPIRONOLACTONE [Concomitant]
     Route: 048
  3. FLOVENT INHALER [Concomitant]
     Route: 055
  4. FLOVENT INHALER [Concomitant]
  5. ALBUTEROL [Concomitant]

REACTIONS (3)
  - Autoimmune thrombocytopenia [Recovered/Resolved]
  - Iron deficiency anaemia [Not Recovered/Not Resolved]
  - Menorrhagia [Not Recovered/Not Resolved]
